FAERS Safety Report 25691013 (Version 1)
Quarter: 2025Q3

REPORT INFORMATION
  Report Type: Spontaneous
  Country: US (occurrence: None)
  Receive Date: 20250816
  Receipt Date: 20250816
  Transmission Date: 20251021
  Serious: Yes (Hospitalization)
  Sender: FDA-CTU
  Company Number: None

PATIENT
  Age: 77 Year
  Sex: Male

DRUGS (1)
  1. AMOXICILLIN\CLAVULANIC ACID [Suspect]
     Active Substance: AMOXICILLIN\CLAVULANIC ACID
     Indication: Chronic sinusitis
     Dosage: 1 TOT-TOTAL TWICE A DAY ORAL ?
     Route: 048
     Dates: start: 20250801, end: 20250810

REACTIONS (1)
  - Drug-induced liver injury [None]

NARRATIVE: CASE EVENT DATE: 20250811
